FAERS Safety Report 13148026 (Version 9)
Quarter: 2018Q1

REPORT INFORMATION
  Report Type: Spontaneous
  Country: US (occurrence: US)
  Receive Date: 20170125
  Receipt Date: 20180219
  Transmission Date: 20180508
  Serious: Yes (Congenital Anomaly, Other)
  Sender: FDA-Public Use
  Company Number: PHEH2017US002317

PATIENT
  Sex: Male

DRUGS (3)
  1. ZOFRAN ODT [Suspect]
     Active Substance: ONDANSETRON HYDROCHLORIDE
     Indication: FOETAL EXPOSURE DURING PREGNANCY
     Dosage: MOTHER^S DOSE: 4 MG
     Route: 064
  2. ZOFRAN [Suspect]
     Active Substance: ONDANSETRON HYDROCHLORIDE
     Indication: FOETAL EXPOSURE DURING PREGNANCY
     Dosage: MOTHER^S DOSE: 4 MG
     Route: 064
  3. ONDANSETRON [Suspect]
     Active Substance: ONDANSETRON
     Indication: FOETAL EXPOSURE DURING PREGNANCY
     Dosage: MOTHER^S DOSE: 4 MG
     Route: 064

REACTIONS (40)
  - Renal cyst [Unknown]
  - Neonatal tachypnoea [Unknown]
  - Ureteric dilatation [Unknown]
  - Congenital vesicoureteric reflux [Unknown]
  - Pneumothorax [Unknown]
  - Urinary tract obstruction [Unknown]
  - Renal atrophy [Unknown]
  - Atrial septal defect [Unknown]
  - Heart disease congenital [Unknown]
  - Congenital pulmonary hypertension [Unknown]
  - Congenital nephrogenic diabetes insipidus [Unknown]
  - Renal failure [Unknown]
  - Right ventricular hypertrophy [Unknown]
  - Premature baby [Unknown]
  - Pleural effusion [Unknown]
  - Single functional kidney [Unknown]
  - Patent ductus arteriosus [Unknown]
  - Congenital hydronephrosis [Unknown]
  - Pulmonary hypoplasia [Unknown]
  - Laevocardia [Unknown]
  - Pulmonary oedema neonatal [Unknown]
  - Chronic kidney disease [Unknown]
  - Arrhythmia neonatal [Unknown]
  - Injury [Unknown]
  - Hypernatraemia [Unknown]
  - Atelectasis neonatal [Unknown]
  - Right ventricular enlargement [Unknown]
  - Pulmonary pneumatocele [Unknown]
  - Upper respiratory tract infection [Unknown]
  - Hydrocele [Unknown]
  - Phimosis [Unknown]
  - Polyuria [Unknown]
  - Congenital tracheomalacia [Unknown]
  - Left-to-right cardiac shunt [Unknown]
  - Urinoma [Unknown]
  - Cystic fibrosis [Unknown]
  - Foetal exposure during pregnancy [Unknown]
  - Sinus bradycardia [Unknown]
  - Renal disorder [Unknown]
  - Neonatal respiratory failure [Unknown]

NARRATIVE: CASE EVENT DATE: 20140910
